FAERS Safety Report 10016412 (Version 1)
Quarter: 2014Q1

REPORT INFORMATION
  Report Type: Spontaneous
  Country: US (occurrence: US)
  Receive Date: 20140317
  Receipt Date: 20140317
  Transmission Date: 20141002
  Serious: No
  Sender: FDA-Public Use
  Company Number: US-PFIZER INC-2014076508

PATIENT
  Age: 37 Year
  Sex: Male
  Weight: 101.13 kg

DRUGS (3)
  1. LYRICA [Suspect]
     Indication: MONONEUROPATHY
     Dosage: 200 MG, 2X/DAY
     Dates: start: 20080304, end: 201402
  2. LYRICA [Suspect]
     Indication: MUSCLE ATROPHY
  3. ADDERALL [Concomitant]
     Indication: ATTENTION DEFICIT/HYPERACTIVITY DISORDER
     Dosage: 30 MG, 2X/DAY

REACTIONS (2)
  - Electromyogram abnormal [Unknown]
  - Nerve conduction studies abnormal [Unknown]
